FAERS Safety Report 15675604 (Version 2)
Quarter: 2018Q4

REPORT INFORMATION
  Report Type: Spontaneous
  Country: FR (occurrence: FR)
  Receive Date: 20181130
  Receipt Date: 20181203
  Transmission Date: 20190205
  Serious: Yes (Other)
  Sender: FDA-Public Use
  Company Number: FR-AMGEN-FRASP2018170031

PATIENT
  Age: 52 Year
  Sex: Female

DRUGS (3)
  1. GOLIMUMAB [Suspect]
     Active Substance: GOLIMUMAB
     Indication: SPONDYLITIS
     Dosage: UNK, UNK (ROTATIONAL BASIS)
     Route: 065
  2. ADALIMUMAB [Suspect]
     Active Substance: ADALIMUMAB
     Indication: SPONDYLITIS
     Dosage: UNK, UNK (ROTATIONAL BASIS)
     Route: 065
  3. ETANERCEPT [Suspect]
     Active Substance: ETANERCEPT
     Indication: SPONDYLITIS
     Dosage: UNK, UNK (ROTATIONAL BASIS)
     Route: 065

REACTIONS (4)
  - Whipple^s disease [Recovering/Resolving]
  - Paraesthesia [Unknown]
  - Condition aggravated [Recovering/Resolving]
  - Diplopia [Recovered/Resolved]
